FAERS Safety Report 20849382 (Version 1)
Quarter: 2022Q2

REPORT INFORMATION
  Report Type: Spontaneous
  Country: US (occurrence: None)
  Receive Date: 20220518
  Receipt Date: 20220518
  Transmission Date: 20220721
  Serious: Yes (Other)
  Sender: FDA-Public Use
  Company Number: None

PATIENT
  Age: 59 Year
  Sex: Male
  Weight: 196.86 kg

DRUGS (1)
  1. MOLNUPIRAVIR [Suspect]
     Active Substance: MOLNUPIRAVIR
     Dates: start: 20220513, end: 20220517

REACTIONS (5)
  - Rash pruritic [None]
  - Penis disorder [None]
  - Hypersensitivity [None]
  - Rash [None]
  - Rash [None]

NARRATIVE: CASE EVENT DATE: 20220514
